FAERS Safety Report 13239176 (Version 3)
Quarter: 2017Q3

REPORT INFORMATION
  Report Type: Report from Study
  Country: US (occurrence: US)
  Receive Date: 20170216
  Receipt Date: 20170807
  Transmission Date: 20171127
  Serious: Yes (Hospitalization)
  Sender: FDA-Public Use
  Company Number: US-BIOGEN-2013BI005428

PATIENT
  Age: 47 Year
  Sex: Female

DRUGS (4)
  1. GILENYA [Concomitant]
     Active Substance: FINGOLIMOD HYDROCHLORIDE
     Indication: MULTIPLE SCLEROSIS
     Route: 065
     Dates: start: 20120401, end: 20120930
  2. AVONEX [Suspect]
     Active Substance: INTERFERON BETA-1A
     Route: 030
     Dates: end: 20130116
  3. AVONEX [Suspect]
     Active Substance: INTERFERON BETA-1A
     Indication: MULTIPLE SCLEROSIS
     Route: 030
     Dates: start: 20100108, end: 20120216
  4. AVONEX [Suspect]
     Active Substance: INTERFERON BETA-1A
     Route: 030

REACTIONS (5)
  - Acute myocardial infarction [Recovered/Resolved]
  - Stress [Unknown]
  - Presyncope [Unknown]
  - Dementia [Not Recovered/Not Resolved]
  - Hypoxia [Unknown]

NARRATIVE: CASE EVENT DATE: 20120801
